FAERS Safety Report 7558052-6 (Version None)
Quarter: 2011Q2

REPORT INFORMATION
  Report Type: 
  Country: None (occurrence: None)
  Receive Date: 20110620
  Receipt Date: 20110610
  Transmission Date: 20111010
  Serious: Yes (Other)
  Sender: FDA-Public Use
  Company Number: PHHY2011HR51233

PATIENT
  Age: 35 Year
  Sex: Female

DRUGS (3)
  1. SERTRALINE [Concomitant]
  2. ALPRAZOLAM [Suspect]
     Dosage: 5-6 MG, UNK
  3. ALPRAZOLAM [Suspect]
     Dosage: 3 MG, UNK
     Dates: end: 20100901

REACTIONS (9)
  - SELF-MEDICATION [None]
  - FEAR [None]
  - BLOOD PROLACTIN INCREASED [None]
  - MENSTRUAL DISORDER [None]
  - ARRHYTHMIA [None]
  - GALACTORRHOEA [None]
  - PALPITATIONS [None]
  - MOOD ALTERED [None]
  - GASTRIC DISORDER [None]
